FAERS Safety Report 4434359-6 (Version None)
Quarter: 2004Q3

REPORT INFORMATION
  Report Type: 
  Country: None (occurrence: None)
  Receive Date: 20040825
  Receipt Date: 20040810
  Transmission Date: 20050211
  Serious: Yes (Other)
  Sender: FDA-Public Use
  Company Number: USA040772544

PATIENT
  Age: 51 Year
  Sex: Female
  Weight: 57 kg

DRUGS (11)
  1. FORTEO [Suspect]
     Indication: OSTEOPOROSIS
     Dosage: 20 UG/1 DAY
     Dates: start: 20040708, end: 20040723
  2. EVISTA [Suspect]
     Indication: OSTEOPOROSIS
  3. AVANDIA (ROSIGLITAOZNE MALEATE) [Concomitant]
  4. LAMICTAL [Concomitant]
  5. KEPPRA [Concomitant]
  6. GEMFIBROZIL [Concomitant]
  7. ZOCOR [Concomitant]
  8. ACETYLSALICYLIC ACID SRT [Concomitant]
  9. SYNTHROID [Concomitant]
  10. RANITIDINE [Concomitant]
  11. COZAAR [Concomitant]

REACTIONS (5)
  - BLOOD GLUCOSE FLUCTUATION [None]
  - HYPERHIDROSIS [None]
  - HYPOGLYCAEMIA [None]
  - LOSS OF CONSCIOUSNESS [None]
  - TACHYCARDIA [None]
